FAERS Safety Report 17167740 (Version 3)
Quarter: 2019Q4

REPORT INFORMATION
  Report Type: Spontaneous
  Country: DE (occurrence: DE)
  Receive Date: 20191218
  Receipt Date: 20191218
  Transmission Date: 20200122
  Serious: Yes (Other)
  Sender: FDA-Public Use
  Company Number: DE-ACS-001352

PATIENT
  Age: 6 Year
  Sex: Male

DRUGS (3)
  1. FOSFOMYCIN [Concomitant]
     Active Substance: FOSFOMYCIN
     Indication: ACINETOBACTER INFECTION
     Route: 065
  2. MEROPENEM. [Suspect]
     Active Substance: MEROPENEM
     Indication: ACINETOBACTER INFECTION
     Dosage: THEN INCREASED TO 10 G/DAY AND THEN TO 15 G/DAY (2 G OVER 3H PLUS SINGLE DOSE OF 1 G ONCE DAILY)
     Route: 065
  3. COLISTIN [Concomitant]
     Active Substance: COLISTIN
     Indication: ACINETOBACTER INFECTION
     Route: 065

REACTIONS (5)
  - Impaired gastric emptying [Unknown]
  - Intentional overdose [Unknown]
  - Haemorrhage intracranial [Not Recovered/Not Resolved]
  - Vomiting [Unknown]
  - Off label use [Unknown]
